FAERS Safety Report 8746251 (Version 2)
Quarter: 2012Q4

REPORT INFORMATION
  Report Type: Report from Study
  Country: US (occurrence: US)
  Receive Date: 20120827
  Receipt Date: 20120831
  Transmission Date: 20130627
  Serious: Yes (Hospitalization, Other)
  Sender: FDA-Public Use
  Company Number: US-JNJFOC-20120811164

PATIENT
  Age: 14 Year
  Sex: Male
  Weight: 59.4 kg

DRUGS (33)
  1. REMICADE [Suspect]
     Indication: CROHN^S DISEASE
     Route: 042
     Dates: start: 20080508
  2. REMICADE [Suspect]
     Indication: CROHN^S DISEASE
     Route: 042
     Dates: start: 20080310
  3. REMICADE [Suspect]
     Indication: CROHN^S DISEASE
     Route: 042
     Dates: start: 20080111
  4. REMICADE [Suspect]
     Indication: CROHN^S DISEASE
     Route: 042
     Dates: start: 20050807, end: 20120507
  5. E VITAMIN [Concomitant]
  6. IVIG [Concomitant]
     Dates: start: 20080808
  7. ATENOLOL [Concomitant]
  8. BENADRYL [Concomitant]
     Indication: PREMEDICATION
  9. MULTIVIT [Concomitant]
  10. COENZYME Q10 [Concomitant]
  11. CREATINE [Concomitant]
  12. FLUDROCORTISONE [Concomitant]
  13. FOLIC ACID [Concomitant]
  14. GABAPENTIN [Concomitant]
  15. GLYCOLAX [Concomitant]
  16. LEVOCARNITINE [Concomitant]
  17. LIPOIC ACID [Concomitant]
  18. MAGNESIUM CITRATE [Concomitant]
  19. MODAFINIL [Concomitant]
  20. NALTREXONE [Concomitant]
  21. NEXIUM [Concomitant]
  22. ONDANSETRON [Concomitant]
  23. PULMICORT [Concomitant]
  24. 5-ASA [Concomitant]
  25. RIBOFLAVIN [Concomitant]
  26. SELENIUM [Concomitant]
  27. TUMS [Concomitant]
  28. VITAMIN  D [Concomitant]
  29. VITAMIN C [Concomitant]
  30. XOPENEX [Concomitant]
  31. MIRALAX [Concomitant]
  32. MIDODRINE [Concomitant]
  33. ACETAMINOPHEN [Concomitant]
     Indication: PREMEDICATION

REACTIONS (2)
  - Incision site abscess [Recovered/Resolved]
  - Infection [Recovered/Resolved]
